FAERS Safety Report 16982614 (Version 2)
Quarter: 2019Q4

REPORT INFORMATION
  Report Type: Spontaneous
  Country: US (occurrence: US)
  Receive Date: 20191101
  Receipt Date: 20191108
  Transmission Date: 20200122
  Serious: Yes (Death, Other)
  Sender: FDA-Public Use
  Company Number: US-TORRENT-00009432

PATIENT
  Sex: Male
  Weight: 136 kg

DRUGS (2)
  1. LOSARTAN. [Suspect]
     Active Substance: LOSARTAN
     Indication: HYPERTENSION
     Dosage: ONCE A DAY, SINCE 13 YEARS
     Dates: start: 2006
  2. OLMESARTAN [Suspect]
     Active Substance: OLMESARTAN
     Indication: HYPERTENSION
     Dosage: UNKNOWN

REACTIONS (6)
  - Death [Fatal]
  - Lung neoplasm surgery [Unknown]
  - Laryngeal cancer [Unknown]
  - Ear neoplasm [Unknown]
  - Lung carcinoma cell type unspecified recurrent [Unknown]
  - Lung neoplasm malignant [Unknown]

NARRATIVE: CASE EVENT DATE: 2014
